FAERS Safety Report 6980291-3 (Version None)
Quarter: 2010Q3

REPORT INFORMATION
  Report Type: 
  Country: None (occurrence: None)
  Receive Date: 20100914
  Receipt Date: 20100907
  Transmission Date: 20110219
  Serious: Yes (Death, Hospitalization, Other)
  Sender: FDA-Public Use
  Company Number: FR-SANOFI-AVENTIS-2009SA009395

PATIENT
  Age: 60 Year
  Sex: Female
  Weight: 57 kg

DRUGS (23)
  1. BLINDED THERAPY [Suspect]
     Indication: NON-SMALL CELL LUNG CANCER METASTATIC
     Route: 042
     Dates: start: 20090630, end: 20090630
  2. BLINDED THERAPY [Suspect]
     Route: 042
     Dates: start: 20091202, end: 20091202
  3. DOCETAXEL [Suspect]
     Indication: NON-SMALL CELL LUNG CANCER METASTATIC
     Route: 042
     Dates: start: 20090630, end: 20090630
  4. DOCETAXEL [Suspect]
     Route: 042
     Dates: start: 20091016, end: 20091016
  5. CORTICOSTEROIDS [Concomitant]
  6. FORLAX [Concomitant]
     Dates: start: 20090701
  7. SODIUM CITRATE/SODIUM LAURYL SULFOACETATE [Concomitant]
     Dates: start: 20090701
  8. ORAMORPH SR [Concomitant]
     Dates: start: 20091108
  9. SOLU-MEDROL [Concomitant]
     Dates: start: 20090924, end: 20090924
  10. ZOFRAN [Concomitant]
     Dates: start: 20090924, end: 20090924
  11. NORTUSSINE [Concomitant]
     Dates: start: 20090901, end: 20090924
  12. EFFERALGAN CODEINE [Concomitant]
     Dates: start: 20090924
  13. ALL OTHER THERAPEUTIC PRODUCTS [Concomitant]
     Dates: start: 20090924
  14. AVIBON [Concomitant]
     Dates: start: 20090924
  15. BETADINE ^PURDUE^ [Concomitant]
     Dates: start: 20090924
  16. GRANOCYTE [Concomitant]
     Dates: start: 20090928, end: 20091024
  17. TAVANIC [Concomitant]
     Dates: start: 20091204, end: 20091214
  18. DAFLON [Concomitant]
     Dates: start: 20091201, end: 20091227
  19. TRIFLUCAN [Concomitant]
     Dates: start: 20091201, end: 20091227
  20. INIPOMP [Concomitant]
     Dates: start: 20091201, end: 20091227
  21. PRIMPERAN TAB [Concomitant]
     Dates: start: 20091201
  22. PERFALGAN [Concomitant]
     Dates: start: 20091201
  23. SCOPODERM [Concomitant]
     Dates: start: 20091201, end: 20091227

REACTIONS (3)
  - DYSPHAGIA [None]
  - LUNG INFECTION [None]
  - TRACHEO-OESOPHAGEAL FISTULA [None]
